FAERS Safety Report 5413064-3 (Version None)
Quarter: 2007Q3

REPORT INFORMATION
  Report Type: 
  Country: None (occurrence: None)
  Receive Date: 20070713
  Receipt Date: 20070315
  Transmission Date: 20080115
  Serious: No
  Sender: FDA-Public Use
  Company Number: 2007SP000885

PATIENT
  Age: 80 Year
  Sex: Male
  Weight: 60.3284 kg

DRUGS (10)
  1. LUNESTA [Suspect]
     Indication: INSOMNIA
     Dosage: 2 MG; ORAL
     Route: 048
     Dates: start: 20070227, end: 20070228
  2. TAMSULOSIN HCL [Concomitant]
  3. HYDROCHLORIDE IBANDRONATE SODIUM [Concomitant]
  4. PREVACID [Concomitant]
  5. MOBIC [Concomitant]
  6. POLYETHYLENE GLYCOL [Concomitant]
  7. VICODIN [Concomitant]
  8. FLEXERIL [Concomitant]
  9. LUPRON [Concomitant]
  10. ALPRAZOLAM [Concomitant]

REACTIONS (4)
  - DRUG INEFFECTIVE [None]
  - HALLUCINATION, AUDITORY [None]
  - HALLUCINATION, VISUAL [None]
  - INSOMNIA [None]
